FAERS Safety Report 4983177-9 (Version None)
Quarter: 2006Q2

REPORT INFORMATION
  Report Type: 
  Country: None (occurrence: None)
  Receive Date: 20060426
  Receipt Date: 20060414
  Transmission Date: 20061013
  Serious: Yes (Other)
  Sender: FDA-Public Use
  Company Number: US-GLAXOSMITHKLINE-A0601850A

PATIENT
  Sex: Female

DRUGS (30)
  1. ADVAIR DISKUS 100/50 [Suspect]
     Indication: CHRONIC OBSTRUCTIVE PULMONARY DISEASE
     Dosage: 1PUFF TWICE PER DAY
     Route: 055
     Dates: start: 20020101, end: 20060401
  2. MUCINEX [Suspect]
     Indication: DRUG USE FOR UNKNOWN INDICATION
     Dates: end: 20060418
  3. PULMICORT [Concomitant]
  4. LIDODERM GEL [Concomitant]
  5. ALBUTEROL SULFATE AUTOHALER [Concomitant]
  6. FERROUS SULFATE TAB [Concomitant]
  7. VITAMINS [Concomitant]
  8. MIACALCIN [Concomitant]
  9. PREMPRO [Concomitant]
  10. SPIRIVA [Concomitant]
  11. ACIPHEX [Concomitant]
  12. SINGULAIR [Concomitant]
  13. CALCIUM GLUCONATE [Concomitant]
  14. CELEBREX [Concomitant]
  15. COLACE [Concomitant]
  16. FOLIC ACID [Concomitant]
  17. SALINE [Concomitant]
  18. GLUCERNA [Concomitant]
  19. LEVOTHYROXINE SODIUM [Concomitant]
  20. WELLBUTRIN XL [Concomitant]
  21. BONIVA [Concomitant]
  22. KLONOPIN [Concomitant]
  23. OXYCODONE HCL [Concomitant]
  24. OXYCONTIN [Concomitant]
  25. MUCINEX [Concomitant]
  26. MAGNESIUM [Concomitant]
  27. ZINC [Concomitant]
  28. VITAMIN B-12 [Concomitant]
  29. PREDNISONE [Concomitant]
  30. VITAMIN D [Concomitant]

REACTIONS (12)
  - AGGRESSION [None]
  - ANOREXIA [None]
  - EAR CONGESTION [None]
  - EAR DISCOMFORT [None]
  - FUNGAL INFECTION [None]
  - INSOMNIA [None]
  - IRRITABILITY [None]
  - LYMPHADENOPATHY [None]
  - NASAL CONGESTION [None]
  - PHARYNGEAL OEDEMA [None]
  - PHARYNGITIS [None]
  - PHARYNGITIS STREPTOCOCCAL [None]
